FAERS Safety Report 7334566-9 (Version None)
Quarter: 2011Q1

REPORT INFORMATION
  Report Type: 
  Country: None (occurrence: None)
  Receive Date: 20110307
  Receipt Date: 20100819
  Transmission Date: 20110831
  Serious: No
  Sender: FDA-Public Use
  Company Number: A0871689A

PATIENT
  Age: 64 Year
  Sex: Female

DRUGS (15)
  1. DARVOCET [Concomitant]
  2. ENABLEX [Concomitant]
  3. DOCUSATE [Concomitant]
  4. BONIVA [Concomitant]
  5. ZANTAC [Suspect]
     Indication: GASTRIC DISORDER
     Dosage: 150MG TWICE PER DAY
     Route: 048
     Dates: end: 20100101
  6. VESICARE [Concomitant]
  7. CYMBALTA [Concomitant]
  8. LUNESTA [Concomitant]
  9. REQUIP [Suspect]
     Indication: RESTLESS LEGS SYNDROME
     Dosage: 1MG TWICE PER DAY
     Route: 048
  10. LORATADINE [Concomitant]
  11. OMEPRAZOLE [Concomitant]
  12. SKELAXIN [Concomitant]
  13. LISINOPRIL [Concomitant]
  14. LIPITOR [Concomitant]
  15. PREMARIN [Concomitant]

REACTIONS (4)
  - THERAPEUTIC PROCEDURE [None]
  - SOMNOLENCE [None]
  - GASTRIC DISORDER [None]
  - NAUSEA [None]
